FAERS Safety Report 11189622 (Version 1)
Quarter: 2015Q2

REPORT INFORMATION
  Report Type: Spontaneous
  Country: TW (occurrence: TW)
  Receive Date: 20150615
  Receipt Date: 20150615
  Transmission Date: 20150821
  Serious: Yes (Death, Life-Threatening, Hospitalization, Other)
  Sender: FDA-Public Use
  Company Number: TW-ROXANE LABORATORIES, INC.-2015-RO-00981RO

PATIENT
  Age: 48 Year
  Sex: Male

DRUGS (1)
  1. METHOTREXATE [Suspect]
     Active Substance: METHOTREXATE
     Indication: PSORIASIS
     Route: 048

REACTIONS (8)
  - Renal failure [Unknown]
  - Pseudomonal sepsis [Unknown]
  - Toxicity to various agents [Fatal]
  - Respiratory distress [Unknown]
  - Myocardial ischaemia [Unknown]
  - Ventricular arrhythmia [Fatal]
  - Shock [Unknown]
  - Febrile neutropenia [Unknown]
